FAERS Safety Report 8549941-4 (Version None)
Quarter: 2012Q3

REPORT INFORMATION
  Report Type: 
  Country: None (occurrence: None)
  Receive Date: 20120730
  Receipt Date: 20120724
  Transmission Date: 20120928
  Serious: Yes (Hospitalization)
  Sender: FDA-Public Use
  Company Number: US-CELGENEUS-163-20785-12072624

PATIENT
  Sex: Female
  Weight: 43.13 kg

DRUGS (8)
  1. LEXAPRO [Concomitant]
     Route: 065
  2. OXYCODONE HCL [Concomitant]
     Route: 065
  3. IMITREX [Concomitant]
     Route: 065
  4. COUMADIN [Concomitant]
     Route: 065
  5. CLARITHROMYCIN [Concomitant]
     Route: 065
  6. DEXAMETHASONE [Concomitant]
     Route: 065
  7. VELCADE [Concomitant]
     Route: 050
  8. THALOMID [Suspect]
     Indication: MULTIPLE MYELOMA
     Dosage: 200 MILLIGRAM
     Route: 048
     Dates: start: 20120613

REACTIONS (2)
  - PYREXIA [None]
  - DECUBITUS ULCER [None]
